FAERS Safety Report 20411386 (Version 1)
Quarter: 2022Q1

REPORT INFORMATION
  Report Type: Report from Study
  Country: US (occurrence: None)
  Receive Date: 20220201
  Receipt Date: 20220201
  Transmission Date: 20220424
  Serious: Yes (Hospitalization, Other)
  Sender: FDA-Public Use
  Company Number: US-ROCHE-2993855

PATIENT
  Age: 68 Year
  Sex: Male
  Weight: 102.6 kg

DRUGS (3)
  1. ATEZOLIZUMAB [Suspect]
     Active Substance: ATEZOLIZUMAB
     Indication: Bladder transitional cell carcinoma
     Dosage: ON 04/NOV/2021, HE RECEIVED MOST RECENT DOSE OF ATEZOLIZUMAB.
     Route: 041
     Dates: start: 20211008
  2. INTERLEUKIN-7 HUMAN RECOMBINANT [Suspect]
     Active Substance: INTERLEUKIN-7 HUMAN RECOMBINANT
     Indication: Bladder transitional cell carcinoma
     Dosage: ON 29/OCT/2021, HE RECEIVED MOST RECENT DOSE OF CYT 107 PRIOR TO THE EVENT.?TOTAL DOSE ADMINISTERED
     Route: 065
     Dates: start: 20211008
  3. LOVENOX [Concomitant]
     Active Substance: ENOXAPARIN SODIUM

REACTIONS (7)
  - Blood alkaline phosphatase increased [Unknown]
  - Anaemia [Recovered/Resolved with Sequelae]
  - Hyperkalaemia [Unknown]
  - Decreased appetite [Unknown]
  - Muscular weakness [Unknown]
  - Hyponatraemia [Unknown]
  - Muscular weakness [Unknown]

NARRATIVE: CASE EVENT DATE: 20211115
